FAERS Safety Report 19586522 (Version 1)
Quarter: 2021Q3

REPORT INFORMATION
  Report Type: Report from Study
  Country: ZA (occurrence: ZA)
  Receive Date: 20210721
  Receipt Date: 20210721
  Transmission Date: 20211014
  Serious: Yes (Death, Hospitalization, Other)
  Sender: FDA-Public Use
  Company Number: ZA-AUROBINDO-AUR-APL-2009-00480

PATIENT
  Age: 32 Year
  Sex: Female

DRUGS (2)
  1. VANRA 30 MG CAPSULES [Suspect]
     Active Substance: STAVUDINE
     Indication: ANTIRETROVIRAL THERAPY
     Dosage: UNK
     Route: 065
     Dates: start: 200701
  2. EFAVIRENZ. [Concomitant]
     Active Substance: EFAVIRENZ
     Indication: ANTIRETROVIRAL THERAPY
     Dosage: UNK
     Route: 065

REACTIONS (5)
  - Toxicity to various agents [Fatal]
  - Lactic acidosis [Fatal]
  - Tachypnoea [Unknown]
  - Hepatic failure [Fatal]
  - Maternal exposure during pregnancy [Unknown]
